FAERS Safety Report 14260022 (Version 3)
Quarter: 2018Q1

REPORT INFORMATION
  Report Type: Spontaneous
  Country: US (occurrence: US)
  Receive Date: 20171207
  Receipt Date: 20180207
  Transmission Date: 20180508
  Serious: No
  Sender: FDA-Public Use
  Company Number: US-VIFOR (INTERNATIONAL) INC.-VIT-2016-06791

PATIENT
  Age: 71 Year
  Sex: Male

DRUGS (12)
  1. VITAMINS NOS [Concomitant]
     Active Substance: VITAMINS
  2. DEPAKOTE [Concomitant]
     Active Substance: DIVALPROEX SODIUM
  3. DIAZEPAM. [Concomitant]
     Active Substance: DIAZEPAM
  4. CIALIS [Concomitant]
     Active Substance: TADALAFIL
  5. FIBER LAXATIVE [Concomitant]
     Active Substance: CALCIUM POLYCARBOPHIL
  6. LEVOTHYROXINE SODIUM. [Concomitant]
     Active Substance: LEVOTHYROXINE SODIUM
  7. FLUOROURACIL. [Concomitant]
     Active Substance: FLUOROURACIL
  8. VELTASSA [Suspect]
     Active Substance: PATIROMER
     Indication: HYPERKALAEMIA
     Route: 048
     Dates: start: 20161012
  9. CYANOCOBALAMIN. [Concomitant]
     Active Substance: CYANOCOBALAMIN
  10. COLACE [Concomitant]
     Active Substance: DOCUSATE SODIUM
  11. VALPROATE SEMISODIUM [Concomitant]
     Active Substance: DIVALPROEX SODIUM
  12. PROAIR HFA [Concomitant]
     Active Substance: ALBUTEROL SULFATE

REACTIONS (3)
  - Constipation [Not Recovered/Not Resolved]
  - Product taste abnormal [Not Recovered/Not Resolved]
  - Drug dose omission [Unknown]

NARRATIVE: CASE EVENT DATE: 20161012
